FAERS Safety Report 10664782 (Version 1)
Quarter: 2014Q4

REPORT INFORMATION
  Report Type: Spontaneous
  Country: US (occurrence: None)
  Receive Date: 20141208
  Receipt Date: 20141208
  Transmission Date: 20150529
  Serious: No
  Sender: FDA-Public Use
  Company Number: 2014TUS006717

PATIENT
  Sex: Female

DRUGS (9)
  1. KLONOPIN [Concomitant]
     Active Substance: CLONAZEPAM
  2. DIOVAN [Concomitant]
     Active Substance: VALSARTAN
  3. ARIMIDEX [Concomitant]
     Active Substance: ANASTROZOLE
  4. BRINTELLIX [Suspect]
     Active Substance: VORTIOXETINE HYDROBROMIDE
     Indication: ANXIETY
     Route: 048
     Dates: start: 20140423, end: 2014
  5. UNK SLEEP AID [Concomitant]
  6. VITAMINS [Concomitant]
     Active Substance: VITAMINS
  7. ASPIRIN. [Concomitant]
     Active Substance: ASPIRIN
  8. BRINTELLIX [Suspect]
     Active Substance: VORTIOXETINE HYDROBROMIDE
     Indication: PANIC DISORDER
     Route: 048
     Dates: start: 20140423, end: 2014
  9. INDERAL [Concomitant]
     Active Substance: PROPRANOLOL HYDROCHLORIDE

REACTIONS (11)
  - Skin discolouration [None]
  - Agitation [None]
  - Abdominal discomfort [None]
  - Nausea [None]
  - Insomnia [None]
  - Off label use [None]
  - Constipation [None]
  - Decreased appetite [None]
  - Depression [None]
  - Faeces hard [None]
  - Night sweats [None]

NARRATIVE: CASE EVENT DATE: 201003
